FAERS Safety Report 5118436-2 (Version None)
Quarter: 2006Q4

REPORT INFORMATION
  Report Type: 
  Country: None (occurrence: None)
  Receive Date: 20061002
  Receipt Date: 20060927
  Transmission Date: 20070319
  Serious: Yes (Death, Life-Threatening)
  Sender: FDA-Public Use
  Company Number: KR-JNJFOC-20060906416

PATIENT
  Sex: Female
  Weight: 59 kg

DRUGS (4)
  1. DURAGESIC-50 [Suspect]
     Route: 062
  2. DURAGESIC-50 [Suspect]
     Indication: CANCER PAIN
     Route: 062
  3. LASIX [Concomitant]
     Indication: ASCITES
     Route: 065
  4. LACTULOSE ENEMA [Concomitant]
     Indication: ASCITES
     Route: 065

REACTIONS (2)
  - COMA HEPATIC [None]
  - HEPATIC ENCEPHALOPATHY [None]
